FAERS Safety Report 8345083-1 (Version None)
Quarter: 2012Q2

REPORT INFORMATION
  Report Type: 
  Country: None (occurrence: None)
  Receive Date: 20120504
  Receipt Date: 20120423
  Transmission Date: 20120825
  Serious: No
  Sender: FDA-Public Use
  Company Number: 2012PL000079

PATIENT
  Age: 53 Year
  Sex: Female
  Weight: 64.4108 kg

DRUGS (4)
  1. LEVOTHYROXINE SODIUM [Concomitant]
  2. LOTRONEX [Suspect]
     Indication: IRRITABLE BOWEL SYNDROME
     Dosage: 2 MG, QD, PO
     Route: 048
     Dates: start: 20060101
  3. SIMVASTATIN [Concomitant]
  4. NOVOLOG [Concomitant]

REACTIONS (1)
  - COLITIS [None]
